FAERS Safety Report 15564868 (Version 1)
Quarter: 2018Q4

REPORT INFORMATION
  Report Type: Spontaneous
  Country: US (occurrence: US)
  Receive Date: 20181030
  Receipt Date: 20181030
  Transmission Date: 20190205
  Serious: Yes (Other)
  Sender: FDA-Public Use
  Company Number: None

PATIENT
  Age: 43 Year
  Sex: Female
  Weight: 60.75 kg

DRUGS (1)
  1. QVAR REDIHALER [Suspect]
     Active Substance: BECLOMETHASONE DIPROPIONATE
     Indication: ASTHMA
     Dosage: ?          QUANTITY:1 INHALATION(S);?
     Route: 055

REACTIONS (7)
  - Dyspnoea [None]
  - Cough [None]
  - Throat irritation [None]
  - Oropharyngeal pain [None]
  - Product substitution issue [None]
  - Muscle spasms [None]
  - Product complaint [None]

NARRATIVE: CASE EVENT DATE: 20181029
